FAERS Safety Report 6452904-6 (Version None)
Quarter: 2009Q4

REPORT INFORMATION
  Report Type: 
  Country: None (occurrence: None)
  Receive Date: 20091124
  Receipt Date: 20081218
  Transmission Date: 20100525
  Serious: Yes (Other)
  Sender: FDA-Public Use
  Company Number: US-ABBOTT-08P-163-0493791-00

PATIENT
  Sex: Male

DRUGS (2)
  1. TRICOR [Suspect]
     Indication: BLOOD TRIGLYCERIDES
  2. SIMAVASTATIN [Concomitant]
     Indication: BLOOD TRIGLYCERIDES

REACTIONS (2)
  - MYALGIA [None]
  - RHABDOMYOLYSIS [None]
